FAERS Safety Report 19218294 (Version 7)
Quarter: 2021Q3

REPORT INFORMATION
  Report Type: Report from Study
  Country: JP (occurrence: JP)
  Receive Date: 20210505
  Receipt Date: 20210706
  Transmission Date: 20211014
  Serious: Yes (Hospitalization)
  Sender: FDA-Public Use
  Company Number: JP-JNJFOC-20210454576

PATIENT
  Age: 68 Year
  Sex: Male
  Weight: 72.3 kg

DRUGS (8)
  1. APALUTAMIDE [Suspect]
     Active Substance: APALUTAMIDE
     Indication: PROSTATE CANCER METASTATIC
     Route: 048
     Dates: start: 20210210, end: 20210422
  2. TAPENTA [Concomitant]
     Active Substance: TAPENTADOL HYDROCHLORIDE
     Route: 048
     Dates: end: 20210428
  3. TARLIGE [Concomitant]
     Active Substance: MIROGABALIN BESYLATE
     Route: 048
  4. NARUSUS [Concomitant]
     Active Substance: HYDROMORPHONE HYDROCHLORIDE
     Dosage: DOSE UNKNOWN
     Route: 048
     Dates: start: 20210502
  5. ACELIO [Concomitant]
     Active Substance: ACETAMINOPHEN
     Route: 042
     Dates: start: 20210424
  6. CALONAL [Concomitant]
     Active Substance: ACETAMINOPHEN
     Route: 048
     Dates: start: 20210428
  7. NARUVEIN [Concomitant]
     Active Substance: HYDROMORPHONE HYDROCHLORIDE
     Dosage: 1ML/H
     Route: 065
     Dates: start: 20210428, end: 20210502
  8. DENOSUMAB(GENETICAL RECOMBINATION) [Concomitant]
     Indication: BONE DENSITY DECREASED
     Dosage: DOSE UNKNOWN
     Route: 058
     Dates: start: 20210310

REACTIONS (2)
  - Abdominal rigidity [Recovered/Resolved]
  - Pelvic pain [Recovered/Resolved]

NARRATIVE: CASE EVENT DATE: 20210421
